FAERS Safety Report 5231842-0 (Version None)
Quarter: 2007Q1

REPORT INFORMATION
  Report Type: 
  Country: None (occurrence: None)
  Receive Date: 20070206
  Receipt Date: 20070129
  Transmission Date: 20070707
  Serious: Yes (Disabling)
  Sender: FDA-Public Use
  Company Number: US-MERCK-0701USA04860

PATIENT
  Age: 69 Year
  Sex: Female

DRUGS (8)
  1. SINGULAIR [Suspect]
     Indication: ASTHMA
     Route: 048
     Dates: start: 20060101, end: 20070101
  2. BIAXIN [Concomitant]
     Indication: ASTHMA
     Route: 065
  3. DIOVAN [Concomitant]
     Route: 065
  4. HYDROCHLOROTHIAZIDE [Concomitant]
     Route: 065
  5. FLUCONAZOLE [Concomitant]
     Route: 065
  6. ALBUTEROL [Concomitant]
     Route: 065
  7. METHYLPREDNISOLONE [Concomitant]
     Route: 065
  8. ALLEGRA-D 12 HOUR [Concomitant]
     Route: 065

REACTIONS (6)
  - ABDOMINAL PAIN UPPER [None]
  - DIZZINESS [None]
  - INFLUENZA [None]
  - STOMACH DISCOMFORT [None]
  - UPPER RESPIRATORY TRACT INFECTION [None]
  - WHITE BLOOD CELL COUNT INCREASED [None]
